FAERS Safety Report 15368896 (Version 1)
Quarter: 2018Q4

REPORT INFORMATION
  Report Type: Spontaneous
  Country: FR (occurrence: FR)
  Receive Date: 20180911
  Receipt Date: 20180911
  Transmission Date: 20190204
  Serious: Yes (Hospitalization)
  Sender: FDA-Public Use
  Company Number: FR-TEVA-2018-FR-953107

PATIENT
  Age: 73 Year
  Sex: Male
  Weight: 78 kg

DRUGS (10)
  1. NOZINAN (LEVOMEPROMAZINE HYDROCHLORIDE) [Suspect]
     Active Substance: LEVOMEPROMAZINE HYDROCHLORIDE
     Indication: SCHIZOPHRENIA
     Dosage: 3 DOSAGE FORMS DAILY;
     Route: 048
     Dates: end: 20170410
  2. SPECIAFOLDINE [Concomitant]
     Active Substance: FOLIC ACID
     Route: 065
  3. UVEDOSE [Concomitant]
     Active Substance: CHOLECALCIFEROL
     Route: 065
  4. OLANZAPINE MYLAN 10 MG,COATED TABLET [Suspect]
     Active Substance: OLANZAPINE
     Indication: SCHIZOPHRENIA
     Dosage: 2 DOSAGE FORMS DAILY;
     Route: 048
  5. FUROSEMIDE ARROW 20 MG,SCORED TABLET [Suspect]
     Active Substance: FUROSEMIDE
     Indication: PRODUCT USED FOR UNKNOWN INDICATION
     Dosage: 1 DOSAGE FORMS DAILY; SCORED TABLET
     Route: 048
     Dates: end: 20180410
  6. MIANSERINE ARROW 30 MG, TABLET COATED SCORED [Suspect]
     Active Substance: MIANSERIN HYDROCHLORIDE
     Indication: DEPRESSION
     Dosage: 1 DOSAGE FORMS DAILY; TABLET COATED SCORED
     Route: 048
     Dates: end: 20170410
  7. PARKINANE LP 2 MG, EXTENDED RELEASE CAPSULE [Suspect]
     Active Substance: TRIHEXYPHENIDYL HYDROCHLORIDE
     Indication: PRODUCT USED FOR UNKNOWN INDICATION
     Dosage: 1 DOSAGE FORMS DAILY; EXTENDED RELEASE CAPSULE
     Route: 048
     Dates: end: 20180410
  8. SPIRONOLACTONE. [Suspect]
     Active Substance: SPIRONOLACTONE
     Indication: PRODUCT USED FOR UNKNOWN INDICATION
     Dosage: 50 MILLIGRAM DAILY;
     Route: 048
     Dates: end: 20180410
  9. LORAZEPAM. [Suspect]
     Active Substance: LORAZEPAM
     Indication: ANXIETY
     Dosage: 2.5 MILLIGRAM DAILY;
     Route: 048
  10. LIPANTHYL 160 MG, COATED TABLET [Suspect]
     Active Substance: FENOFIBRATE
     Indication: DYSLIPIDAEMIA
     Route: 048
     Dates: end: 20170401

REACTIONS (1)
  - Fall [Recovered/Resolved]

NARRATIVE: CASE EVENT DATE: 20170326
